FAERS Safety Report 17228828 (Version 1)
Quarter: 2019Q4

REPORT INFORMATION
  Report Type: Spontaneous
  Country: US (occurrence: US)
  Receive Date: 20191210
  Receipt Date: 20191210
  Transmission Date: 20200122
  Serious: Yes (Hospitalization)
  Sender: FDA-Public Use
  Company Number: None

PATIENT
  Age: 42 Year
  Sex: Male

DRUGS (1)
  1. GLEOSTINE [Suspect]
     Active Substance: LOMUSTINE
     Indication: BRAIN NEOPLASM
     Dosage: ?          OTHER FREQUENCY:OTHER;?
     Route: 048

REACTIONS (5)
  - Immune system disorder [None]
  - Therapy change [None]
  - Platelet count decreased [None]
  - Pneumonia [None]
  - Neutrophil count decreased [None]

NARRATIVE: CASE EVENT DATE: 20191208
